FAERS Safety Report 4809264-3 (Version None)
Quarter: 2005Q4

REPORT INFORMATION
  Report Type: 
  Country: None (occurrence: None)
  Receive Date: 20051025
  Receipt Date: 20051019
  Transmission Date: 20060501
  Serious: Yes (Other)
  Sender: FDA-Public Use
  Company Number: BR-BRISTOL-MYERS SQUIBB COMPANY-13154836

PATIENT
  Age: 81 Year
  Sex: Female

DRUGS (1)
  1. TEQUIN [Suspect]
     Indication: POSTOPERATIVE INFECTION
     Route: 042

REACTIONS (2)
  - HYPERGLYCAEMIA [None]
  - HYPOGLYCAEMIA [None]
